FAERS Safety Report 21933357 (Version 1)
Quarter: 2023Q1

REPORT INFORMATION
  Report Type: Spontaneous
  Country: US (occurrence: US)
  Receive Date: 20230131
  Receipt Date: 20230131
  Transmission Date: 20230417
  Serious: Yes (Hospitalization, Other)
  Sender: FDA-Public Use
  Company Number: US-BAUSCHBL-2023BNL000638

PATIENT
  Age: 2 Year
  Sex: Female

DRUGS (2)
  1. BRIMONIDINE [Suspect]
     Active Substance: BRIMONIDINE TARTRATE
     Indication: Product used for unknown indication
     Route: 048
  2. BRIMONIDINE [Suspect]
     Active Substance: BRIMONIDINE TARTRATE

REACTIONS (3)
  - Accidental poisoning [Recovered/Resolved]
  - Accidental exposure to product by child [Unknown]
  - Incorrect route of product administration [Unknown]
